FAERS Safety Report 6150882-0 (Version None)
Quarter: 2009Q2

REPORT INFORMATION
  Report Type: 
  Country: None (occurrence: None)
  Receive Date: 20090406
  Receipt Date: 20090323
  Transmission Date: 20091009
  Serious: Yes (Other)
  Sender: FDA-Public Use
  Company Number: THYM-1000935

PATIENT
  Age: 45 Year
  Sex: Male
  Weight: 124 kg

DRUGS (9)
  1. THYMOGLOBULIN [Suspect]
     Indication: IMMUNOSUPPRESSANT DRUG THERAPY
     Dosage: 150 MG, QD, INTRAVENOUS
     Route: 042
     Dates: start: 20090220, end: 20090224
  2. THYMOGLOBULIN [Suspect]
     Indication: PROPHYLAXIS AGAINST TRANSPLANT REJECTION
     Dosage: 150 MG, QD, INTRAVENOUS
     Route: 042
     Dates: start: 20090220, end: 20090224
  3. METHYLPREDNISOLONE 16MG TAB [Concomitant]
  4. TACROLIMUS [Concomitant]
  5. VALCYTE [Concomitant]
  6. SEPTRA [Concomitant]
  7. NEXIUM (ESOMEPRAZOLE SODIUM) [Concomitant]
  8. ACETAMINOPHEN [Concomitant]
  9. BENADRYL [Concomitant]

REACTIONS (6)
  - CHILLS [None]
  - CYTOKINE RELEASE SYNDROME [None]
  - DYSPNOEA [None]
  - HYPOXIA [None]
  - PYREXIA [None]
  - TACHYCARDIA [None]
